FAERS Safety Report 18456321 (Version 3)
Quarter: 2021Q2

REPORT INFORMATION
  Report Type: Spontaneous
  Country: US (occurrence: US)
  Receive Date: 20201103
  Receipt Date: 20210517
  Transmission Date: 20210717
  Serious: Yes (Hospitalization, Other)
  Sender: FDA-Public Use
  Company Number: US-ADVANZ PHARMA-202010009756

PATIENT

DRUGS (4)
  1. CLONIDINE. [Suspect]
     Active Substance: CLONIDINE
     Indication: SKIN ABRASION
     Dosage: CREAM
     Route: 061
  2. GABAPENTIN. [Suspect]
     Active Substance: GABAPENTIN
     Indication: SKIN ABRASION
     Dosage: UNK
     Route: 061
  3. LIDOCAINE. [Suspect]
     Active Substance: LIDOCAINE
     Indication: SKIN ABRASION
     Dosage: UNK
     Route: 061
  4. KETAMINE [Suspect]
     Active Substance: KETAMINE
     Indication: SKIN ABRASION
     Dosage: UNK
     Route: 061

REACTIONS (4)
  - Prescription drug used without a prescription [Unknown]
  - Toxicity to various agents [Recovered/Resolved]
  - Hypotension [Recovered/Resolved]
  - Bradycardia [Recovered/Resolved]
